FAERS Safety Report 8808130 (Version 1)
Quarter: 2012Q4

REPORT INFORMATION
  Report Type: Report from Study
  Country: US (occurrence: US)
  Receive Date: 20120925
  Receipt Date: 20120925
  Transmission Date: 20130627
  Serious: Yes (Other)
  Sender: FDA-Public Use
  Company Number: US-ABBOTT-12P-163-0980804-00

PATIENT
  Sex: Female
  Weight: 81.72 kg

DRUGS (4)
  1. HUMIRA [Suspect]
     Indication: CROHN^S DISEASE
     Route: 058
     Dates: start: 2009, end: 201205
  2. HUMIRA [Suspect]
     Route: 058
     Dates: start: 201206
  3. PREMARIN [Concomitant]
     Indication: OESTROGEN REPLACEMENT THERAPY
     Route: 048
  4. PROTONIX [Concomitant]
     Indication: CROHN^S DISEASE

REACTIONS (3)
  - Colonic stenosis [Recovered/Resolved]
  - Large intestinal ulcer [Unknown]
  - Abdominal adhesions [Unknown]
